FAERS Safety Report 8017812-8 (Version None)
Quarter: 2012Q1

REPORT INFORMATION
  Report Type: 
  Country: None (occurrence: None)
  Receive Date: 20120103
  Receipt Date: 20111228
  Transmission Date: 20120608
  Serious: No
  Sender: FDA-Public Use
  Company Number: US-PFIZER INC-2011306520

PATIENT
  Sex: Male
  Weight: 85.7 kg

DRUGS (4)
  1. SUTENT [Suspect]
     Dosage: 12.5 MG, 4 CAPSULES DAILY
     Route: 048
     Dates: start: 20111117
  2. SUTENT [Suspect]
     Dosage: 12.5 MG, 4 CAPSULES DAILY
     Route: 048
  3. ACETYLSALICYLIC ACID [Concomitant]
     Dosage: 81 MG, UNK
  4. AMLODIPINE [Concomitant]
     Dosage: 5 MG, UNK

REACTIONS (1)
  - EPISTAXIS [None]
